FAERS Safety Report 7081470-X (Version None)
Quarter: 2010Q4

REPORT INFORMATION
  Report Type: 
  Country: None (occurrence: None)
  Receive Date: 20101103
  Receipt Date: 20101026
  Transmission Date: 20110411
  Serious: Yes (Other)
  Sender: FDA-Public Use
  Company Number: GXKR2010TN12076

PATIENT
  Age: 18 Year
  Sex: Female

DRUGS (4)
  1. VINCRISTINE (NGX) [Suspect]
     Indication: ACUTE LYMPHOCYTIC LEUKAEMIA
     Route: 065
  2. PREDNISONE (NGX) [Suspect]
     Indication: ACUTE LYMPHOCYTIC LEUKAEMIA
     Dosage: UNK
     Route: 065
  3. DAUNORUBICIN HCL [Suspect]
     Indication: ACUTE LYMPHOCYTIC LEUKAEMIA
     Route: 065
  4. ASPARAGINASE [Suspect]
     Indication: ACUTE LYMPHOCYTIC LEUKAEMIA
     Route: 065

REACTIONS (7)
  - CRYPTOCOCCOSIS [None]
  - LYMPHADENOPATHY [None]
  - LYMPHOPENIA [None]
  - NEUTROPENIA [None]
  - PYREXIA [None]
  - SURGERY [None]
  - THROMBOCYTOPENIA [None]
